FAERS Safety Report 18156339 (Version 2)
Quarter: 2020Q3

REPORT INFORMATION
  Report Type: Spontaneous
  Country: CN (occurrence: CN)
  Receive Date: 20200817
  Receipt Date: 20200818
  Transmission Date: 20201103
  Serious: Yes (Death, Life-Threatening, Other)
  Sender: FDA-Public Use
  Company Number: CN-PFIZER INC-2020309240

PATIENT
  Age: 73 Year
  Sex: Male

DRUGS (5)
  1. CARBOPLATIN. [Suspect]
     Active Substance: CARBOPLATIN
     Indication: SARCOMATOID CARCINOMA OF THE LUNG
  2. PACLITAXEL. [Suspect]
     Active Substance: PACLITAXEL
     Indication: SARCOMATOID CARCINOMA OF THE LUNG
  3. PACLITAXEL. [Suspect]
     Active Substance: PACLITAXEL
     Indication: CHEMOTHERAPY
     Dosage: 220 MG
     Dates: start: 20180605
  4. CARBOPLATIN. [Suspect]
     Active Substance: CARBOPLATIN
     Indication: CHEMOTHERAPY
     Dosage: 380 MG, CYCLIC (Q21D)
     Dates: start: 20180605
  5. MORPHINE HYDROCHLORIDE [Concomitant]
     Active Substance: MORPHINE HYDROCHLORIDE
     Indication: CHEST PAIN
     Dosage: 12 MG, 2X/DAY (Q12H)
     Dates: start: 201806

REACTIONS (3)
  - Nausea [Unknown]
  - Vomiting [Unknown]
  - Leukopenia [Unknown]

NARRATIVE: CASE EVENT DATE: 201806
